FAERS Safety Report 8249897-8 (Version None)
Quarter: 2012Q1

REPORT INFORMATION
  Report Type: 
  Country: None (occurrence: None)
  Receive Date: 20120328
  Receipt Date: 20120321
  Transmission Date: 20120608
  Serious: Yes (Death)
  Sender: FDA-Public Use
  Company Number: ADR-2012-00602

PATIENT

DRUGS (1)
  1. BACLOFEN [Suspect]

REACTIONS (1)
  - DEVICE MALFUNCTION [None]
